FAERS Safety Report 6121500-2 (Version None)
Quarter: 2009Q1

REPORT INFORMATION
  Report Type: 
  Country: None (occurrence: None)
  Receive Date: 20090313
  Receipt Date: 20090302
  Transmission Date: 20090719
  Serious: Yes (Hospitalization)
  Sender: FDA-Public Use
  Company Number: GXKR2009TW02677

PATIENT
  Age: 45 Year
  Sex: Female

DRUGS (10)
  1. DOXORUBICIN HCL [Suspect]
     Indication: BONE MARROW TUMOUR CELL INFILTRATION
     Dosage: SEE IMAGE
  2. DOXORUBICIN HCL [Suspect]
     Indication: LYMPHOMA
     Dosage: SEE IMAGE
  3. VINCRISTINE [Suspect]
     Indication: BONE MARROW TUMOUR CELL INFILTRATION
     Dosage: 2 MG, DAY 1, EVERY 3 WEEKS,75%, IN 4TH, 5TH AND 6TH CYCLE, UNKNOWN
  4. VINCRISTINE [Suspect]
     Indication: LYMPHOMA
     Dosage: 2 MG, DAY 1, EVERY 3 WEEKS,75%, IN 4TH, 5TH AND 6TH CYCLE, UNKNOWN
  5. PREDNISOLONE [Suspect]
     Indication: BONE MARROW TUMOUR CELL INFILTRATION
     Dosage: 100 MG, 5 DAYS, EVERY 3 WEEKS,
  6. PREDNISOLONE [Suspect]
     Indication: LYMPHOMA
     Dosage: 100 MG, 5 DAYS, EVERY 3 WEEKS,
  7. RITUXIMAB (RITUXIMAB) [Suspect]
     Indication: BONE MARROW TUMOUR CELL INFILTRATION
     Dosage: 375 MG/M2
  8. RITUXIMAB (RITUXIMAB) [Suspect]
     Indication: LYMPHOMA
     Dosage: 375 MG/M2
  9. CYCLOPHOSPHAMIDE [Suspect]
     Indication: BONE MARROW TUMOUR CELL INFILTRATION
     Dosage: 750 MG/M2, DAY 1, EVERY 3 WEEKS
  10. CYCLOPHOSPHAMIDE [Suspect]
     Indication: LYMPHOMA
     Dosage: 750 MG/M2, DAY 1, EVERY 3 WEEKS

REACTIONS (4)
  - CHEST PAIN [None]
  - NEUTROPENIA [None]
  - PARAESTHESIA [None]
  - PNEUMOCYSTIS JIROVECI PNEUMONIA [None]
